FAERS Safety Report 9445260 (Version 5)
Quarter: 2014Q3

REPORT INFORMATION
  Report Type: Report from Study
  Country: JP (occurrence: JP)
  Receive Date: 20130807
  Receipt Date: 20140801
  Transmission Date: 20150326
  Serious: Yes (Hospitalization)
  Sender: FDA-Public Use
  Company Number: JP-VIIV HEALTHCARE LIMITED-B0912945A

PATIENT
  Age: 4 Decade
  Sex: Male

DRUGS (25)
  1. CELSENTRI [Suspect]
     Active Substance: MARAVIROC
     Indication: HIV INFECTION
     Route: 048
     Dates: start: 20121025, end: 20130412
  2. ISENTRESS [Concomitant]
     Active Substance: RALTEGRAVIR POTASSIUM
     Indication: HIV INFECTION
     Route: 048
     Dates: start: 20110309
  3. EDURANT [Concomitant]
     Active Substance: RILPIVIRINE HYDROCHLORIDE
     Indication: HIV INFECTION
     Route: 048
     Dates: start: 20130406, end: 20130606
  4. REBAMIPIDE [Concomitant]
     Active Substance: REBAMIPIDE
     Indication: PROPHYLAXIS AGAINST GASTROINTESTINAL ULCER
     Dosage: 100MG TWICE PER DAY
     Route: 048
     Dates: start: 20131007
  5. EPZICOM [Suspect]
     Active Substance: ABACAVIR SULFATE\LAMIVUDINE
     Indication: HIV INFECTION
     Route: 048
     Dates: start: 20110309
  6. NORVIR [Suspect]
     Active Substance: RITONAVIR
     Indication: HIV INFECTION
     Route: 048
     Dates: start: 20110824, end: 20130405
  7. ANCOTIL [Suspect]
     Active Substance: FLUCYTOSINE
     Indication: DISSEMINATED CRYPTOCOCCOSIS
     Dosage: 1500MG FOUR TIMES PER DAY
     Route: 048
     Dates: start: 20110222, end: 20120618
  8. ZITHROMAC [Concomitant]
     Active Substance: AZITHROMYCIN DIHYDRATE
     Indication: PROPHYLAXIS
     Route: 065
     Dates: start: 20110211, end: 20120424
  9. LIPACREON [Concomitant]
     Active Substance: PANCRELIPASE
     Indication: PANCREATITIS ACUTE
     Dosage: 150MG THREE TIMES PER DAY
     Route: 048
     Dates: start: 20131109
  10. MICARDIS [Concomitant]
     Active Substance: TELMISARTAN
     Indication: HYPERTENSION
     Dosage: 40MG PER DAY
     Route: 048
     Dates: start: 20120411, end: 20131011
  11. TAKEPRON [Concomitant]
     Active Substance: LANSOPRAZOLE
     Indication: PROPHYLAXIS AGAINST GASTROINTESTINAL ULCER
     Dosage: 15MG PER DAY
     Route: 048
     Dates: start: 20120607, end: 20130402
  12. DEPAKENE [Concomitant]
     Active Substance: VALPROIC ACID
     Indication: EPILEPSY
     Dosage: 200MG TWICE PER DAY
     Route: 048
     Dates: start: 20130606, end: 20130716
  13. FAMOTIDINE D [Concomitant]
     Active Substance: FAMOTIDINE
     Indication: PROPHYLAXIS AGAINST GASTROINTESTINAL ULCER
     Dosage: 20MG PER DAY
     Route: 048
     Dates: start: 20130403
  14. SAMTIREL [Suspect]
     Active Substance: ATOVAQUONE
     Indication: ANTIFUNGAL PROPHYLAXIS
     Dosage: 1500MG PER DAY
     Route: 048
     Dates: start: 20120523
  15. ATOVAQUONE. [Concomitant]
     Active Substance: ATOVAQUONE
     Indication: ANTIFUNGAL PROPHYLAXIS
     Dosage: 1500MG PER DAY
     Route: 048
     Dates: start: 2011, end: 20120522
  16. DEPAKENE [Concomitant]
     Active Substance: VALPROIC ACID
     Indication: EPILEPSY
     Dosage: 300MG TWICE PER DAY
     Route: 048
     Dates: start: 20130824
  17. AMLODIPINE [Concomitant]
     Active Substance: AMLODIPINE BESYLATE
     Indication: HYPERTENSION
     Dosage: 5MG PER DAY
     Route: 048
     Dates: start: 20120314
  18. DEPAKENE [Concomitant]
     Active Substance: VALPROIC ACID
     Indication: EPILEPSY
     Route: 048
     Dates: start: 20130717, end: 20130823
  19. PREZISTA [Suspect]
     Active Substance: DARUNAVIR ETHANOLATE
     Indication: HIV INFECTION
     Dosage: 800MG PER DAY
     Route: 048
     Dates: start: 20110824, end: 20130405
  20. ANCOTIL [Suspect]
     Active Substance: FLUCYTOSINE
     Indication: DISSEMINATED CRYPTOCOCCOSIS
     Dosage: 1500MG TWICE PER DAY
     Route: 048
     Dates: start: 20120619
  21. VFEND [Concomitant]
     Active Substance: VORICONAZOLE
     Indication: DISSEMINATED CRYPTOCOCCOSIS
     Dosage: 200MG TWICE PER DAY
     Route: 048
     Dates: start: 20131118
  22. ROZEREM [Concomitant]
     Active Substance: RAMELTEON
     Indication: INSOMNIA
     Dosage: 8MG PER DAY
     Route: 048
     Dates: start: 20130910
  23. CAMOSTAT MESILATE [Concomitant]
     Active Substance: CAMOSTAT MESYLATE
     Indication: PANCREATITIS ACUTE
     Dosage: 200MG THREE TIMES PER DAY
     Route: 048
     Dates: start: 20131109
  24. FLUCONAZOLE. [Suspect]
     Active Substance: FLUCONAZOLE
     Indication: DISSEMINATED CRYPTOCOCCOSIS
     Dosage: 400MG PER DAY
     Route: 065
     Dates: start: 20120229, end: 20130401
  25. AMBISOME [Suspect]
     Active Substance: AMPHOTERICIN B
     Indication: DISSEMINATED CRYPTOCOCCOSIS
     Dosage: 300MG PER DAY
     Route: 042
     Dates: start: 20110304, end: 20131127

REACTIONS (5)
  - Epilepsy [Recovering/Resolving]
  - Renal impairment [Not Recovered/Not Resolved]
  - Insomnia [Not Recovered/Not Resolved]
  - Hyperlipidaemia [Recovering/Resolving]
  - Pancreatitis acute [Recovering/Resolving]

NARRATIVE: CASE EVENT DATE: 20130606
